FAERS Safety Report 9152307 (Version 2)
Quarter: 2013Q2

REPORT INFORMATION
  Report Type: Report from Study
  Country: US (occurrence: US)
  Receive Date: 20130308
  Receipt Date: 20130520
  Transmission Date: 20140414
  Serious: Yes (Hospitalization)
  Sender: FDA-Public Use
  Company Number: US-ACTELION-A-NJ2013-80123

PATIENT
  Age: 86 Year
  Sex: Male

DRUGS (7)
  1. TRACLEER [Suspect]
     Indication: PULMONARY ARTERIAL HYPERTENSION
     Dosage: 125 MG, BID
     Route: 048
  2. TRACLEER [Suspect]
     Dosage: 125 MG, BID
     Route: 048
     Dates: start: 201001, end: 2010
  3. TRACLEER [Suspect]
     Dosage: 125 MG, QD
     Route: 048
     Dates: start: 2010
  4. WARFARIN [Concomitant]
     Dosage: 5 MG, 5 DAYS/WEEK
  5. WARFARIN [Concomitant]
     Dosage: 2.5 MG, 2 DAYS/WEEK
  6. COLCRYS [Concomitant]
     Dosage: 0.6 MG, QD
  7. DILTIAZEM [Concomitant]
     Dosage: 120 MG, UNK

REACTIONS (4)
  - Atrial fibrillation [Unknown]
  - Cardiac pacemaker insertion [Unknown]
  - Abasia [Recovered/Resolved]
  - Cardiac failure congestive [Unknown]
